FAERS Safety Report 23361026 (Version 1)
Quarter: 2024Q1

REPORT INFORMATION
  Report Type: Spontaneous
  Country: US (occurrence: None)
  Receive Date: 20240102
  Receipt Date: 20240102
  Transmission Date: 20240410
  Serious: No
  Sender: FDA-Public Use
  Company Number: None

PATIENT

DRUGS (2)
  1. NOVOLIN 70/30 [Suspect]
     Active Substance: INSULIN HUMAN
  2. NOVOLOG MIX 70/30 [Suspect]
     Active Substance: INSULIN ASPART

REACTIONS (4)
  - Product dispensing error [None]
  - Transcription medication error [None]
  - Product dispensing error [None]
  - Wrong product administered [None]
